FAERS Safety Report 25447691 (Version 1)
Quarter: 2025Q2

REPORT INFORMATION
  Report Type: Spontaneous
  Country: US (occurrence: US)
  Receive Date: 20250617
  Receipt Date: 20250617
  Transmission Date: 20250717
  Serious: No
  Sender: MYLAN
  Company Number: US-MYLANLABS-2025M1050377

PATIENT
  Sex: Female
  Weight: 90.72 kg

DRUGS (4)
  1. CLONIDINE [Suspect]
     Active Substance: CLONIDINE
     Indication: Hypertension
  2. CLONIDINE [Suspect]
     Active Substance: CLONIDINE
     Route: 062
  3. CLONIDINE [Suspect]
     Active Substance: CLONIDINE
     Route: 062
  4. CLONIDINE [Suspect]
     Active Substance: CLONIDINE

REACTIONS (5)
  - Dry throat [Unknown]
  - Dysphonia [Unknown]
  - Application site pain [Unknown]
  - Tongue dry [Unknown]
  - Product adhesion issue [Unknown]
